FAERS Safety Report 5097097-5 (Version None)
Quarter: 2006Q3

REPORT INFORMATION
  Report Type: 
  Country: None (occurrence: None)
  Receive Date: 20060906
  Receipt Date: 20060719
  Transmission Date: 20061208
  Serious: Yes (Hospitalization)
  Sender: FDA-Public Use
  Company Number: FRWYE278420JUL06

PATIENT
  Sex: Male
  Weight: 109 kg

DRUGS (4)
  1. ENBREL [Suspect]
     Indication: PSORIATIC ARTHROPATHY
     Route: 058
     Dates: start: 20031001
  2. CORTICOSTEROIDS [Suspect]
     Indication: PSORIASIS
     Dosage: UNKNOWN
     Route: 061
     Dates: end: 20060530
  3. DERMOVAL [Suspect]
     Indication: PSORIASIS
     Dosage: UNKNOWN
     Route: 061
     Dates: start: 20060529
  4. SORIATANE [Concomitant]
     Indication: PSORIASIS
     Dosage: 50 MG TOTAL DAILY
     Route: 048
     Dates: start: 20060401, end: 20060523

REACTIONS (2)
  - PSORIASIS [None]
  - PUSTULAR PSORIASIS [None]
